FAERS Safety Report 8208274-6 (Version None)
Quarter: 2012Q1

REPORT INFORMATION
  Report Type: 
  Country: None (occurrence: None)
  Receive Date: 20120314
  Receipt Date: 20120312
  Transmission Date: 20120608
  Serious: Yes (Death)
  Sender: FDA-Public Use
  Company Number: PHHY2012CA019924

PATIENT
  Sex: Female

DRUGS (4)
  1. ZOLEDRONOC ACID [Suspect]
     Dosage: UNK
     Route: 042
     Dates: start: 20090101
  2. ZOLEDRONOC ACID [Suspect]
     Dosage: UNK
     Route: 042
     Dates: start: 20100101
  3. ZOLEDRONOC ACID [Suspect]
     Route: 042
     Dates: start: 20110404
  4. ZOLEDRONOC ACID [Suspect]
     Route: 042
     Dates: start: 20080101

REACTIONS (1)
  - DEATH [None]
